FAERS Safety Report 11416843 (Version 2)
Quarter: 2015Q3

REPORT INFORMATION
  Report Type: Spontaneous
  Country: JP (occurrence: JP)
  Receive Date: 20150825
  Receipt Date: 20150901
  Transmission Date: 20151125
  Serious: Yes (Hospitalization)
  Sender: FDA-Public Use
  Company Number: PHJP2015JP014370

PATIENT
  Age: 86 Year
  Sex: Female

DRUGS (1)
  1. EXELON PATCH [Suspect]
     Active Substance: RIVASTIGMINE
     Indication: CEREBRAL INFARCTION
     Dosage: 9.5 MG, QD (PATCH 10, BASE 18 MG)
     Route: 062

REACTIONS (2)
  - Off label use [Unknown]
  - Cholangitis acute [Unknown]
